FAERS Safety Report 4319629-4 (Version None)
Quarter: 2004Q1

REPORT INFORMATION
  Report Type: 
  Country: None (occurrence: None)
  Receive Date: 20040319
  Receipt Date: 20030404
  Transmission Date: 20041129
  Serious: Yes (Hospitalization, Disabling)
  Sender: FDA-Public Use
  Company Number: WAES 0304FRA00020

PATIENT
  Age: 78 Year
  Sex: Female

DRUGS (5)
  1. FOSAMAX [Suspect]
     Indication: OSTEOPOROSIS
     Route: 048
     Dates: start: 20030112, end: 20030202
  2. FOSAMAX [Suspect]
     Route: 048
     Dates: start: 20020501, end: 20030111
  3. DIGOXIN [Concomitant]
     Indication: CARDIAC FAILURE CONGESTIVE
     Route: 048
  4. FENTANYL [Concomitant]
     Indication: PAIN
     Route: 061
  5. FUROSEMIDE [Concomitant]
     Indication: CARDIAC FAILURE CONGESTIVE
     Route: 048

REACTIONS (4)
  - BURNING SENSATION [None]
  - DYSSTASIA [None]
  - HYPERSENSITIVITY [None]
  - OEDEMA PERIPHERAL [None]
